FAERS Safety Report 5023139-9 (Version None)
Quarter: 2006Q2

REPORT INFORMATION
  Report Type: 
  Country: None (occurrence: None)
  Receive Date: 20060605
  Receipt Date: 20060418
  Transmission Date: 20061013
  Serious: Yes (Other)
  Sender: FDA-Public Use
  Company Number: CHNY2006GB01307

PATIENT
  Age: 61 Year
  Sex: Female

DRUGS (3)
  1. SCOPODERM TTS (NCH) (HYOSCINE HYDROBROMIDE) TRANS-THERAPEUTIC-SYSTEM [Suspect]
     Indication: MOTION SICKNESS
     Dosage: 1 PATCH EVERY 4 DAYS, TRANSDERMAL
     Route: 062
     Dates: start: 20051001, end: 20051001
  2. SIMVASTATIN [Concomitant]
  3. MIGRALEVE (BUCLIZINE HYDROCHLORIDE, CODEINE PHOSPHATE, PARACETAMOL) [Concomitant]

REACTIONS (5)
  - DIZZINESS [None]
  - MALAISE [None]
  - NAUSEA [None]
  - VOMITING [None]
  - WEIGHT DECREASED [None]
